FAERS Safety Report 25948806 (Version 1)
Quarter: 2025Q4

REPORT INFORMATION
  Report Type: Report from Study
  Country: PH (occurrence: PH)
  Receive Date: 20251022
  Receipt Date: 20251022
  Transmission Date: 20260118
  Serious: Yes (Death)
  Sender: OTSUKA
  Company Number: PH-MMM-Otsuka-XF8T1YAB

PATIENT
  Sex: Female

DRUGS (1)
  1. TOLVAPTAN [Suspect]
     Active Substance: TOLVAPTAN
     Indication: Cardiac failure
     Dosage: 0.5 DF, TIW (15 MG 1/2 TABLET EVERY MONDAY, WEDNESDAY AND FRIDAY AFTER BREAKFAST)
     Dates: start: 202501, end: 202509

REACTIONS (4)
  - Death [Fatal]
  - Prescribed underdose [Unknown]
  - Wrong technique in product usage process [Unknown]
  - Inappropriate schedule of product administration [Unknown]

NARRATIVE: CASE EVENT DATE: 20250101
